FAERS Safety Report 8111675-8 (Version None)
Quarter: 2012Q1

REPORT INFORMATION
  Report Type: 
  Country: None (occurrence: None)
  Receive Date: 20120203
  Receipt Date: 20120123
  Transmission Date: 20120608
  Serious: Yes (Hospitalization)
  Sender: FDA-Public Use
  Company Number: US-JNJFOC-20120110339

PATIENT
  Sex: Female
  Weight: 27 kg

DRUGS (5)
  1. INFLIXIMAB, RECOMBINANT [Suspect]
     Indication: COLITIS ULCERATIVE
     Route: 042
     Dates: start: 20091031
  2. INFLIXIMAB, RECOMBINANT [Suspect]
     Route: 042
     Dates: start: 20100315
  3. FLAGYL [Concomitant]
  4. BUDESONIDE [Concomitant]
  5. ASPIRIN [Concomitant]

REACTIONS (1)
  - POUCHITIS [None]
